FAERS Safety Report 17809591 (Version 1)
Quarter: 2020Q2

REPORT INFORMATION
  Report Type: Report from Study
  Country: None (occurrence: CH)
  Receive Date: 20200521
  Receipt Date: 20200521
  Transmission Date: 20200714
  Serious: Yes (Death, Hospitalization)
  Sender: FDA-Public Use
  Company Number: CH-ABBVIE-20K-151-3411370-00

PATIENT
  Age: 68 Year
  Sex: Male

DRUGS (3)
  1. DUODOPA [Suspect]
     Active Substance: CARBIDOPA\LEVODOPA
     Dosage: MD: 4 ML, CRD: 3.2 ML/H, CRN: 1.5 ML/H, ED: 1 ML, 24 H THERAPY
     Route: 050
     Dates: start: 20171222, end: 20180104
  2. DUODOPA [Suspect]
     Active Substance: CARBIDOPA\LEVODOPA
     Dosage: MD:4 ML,CRD:3.2 ML/H,CRN:1.5 ML/H, ED:1 ML,1CASSETTE PER DAY,20 MG/ML 5 MG/ML, 24 H THERPY
     Route: 050
     Dates: start: 20200420
  3. DUODOPA [Suspect]
     Active Substance: CARBIDOPA\LEVODOPA
     Indication: PARKINSON^S DISEASE
     Dosage: 24 H THERAPY
     Route: 050
     Dates: start: 20171218, end: 20171222

REACTIONS (1)
  - Death [Fatal]

NARRATIVE: CASE EVENT DATE: 20200515
